FAERS Safety Report 7812428-8 (Version None)
Quarter: 2011Q4

REPORT INFORMATION
  Report Type: 
  Country: None (occurrence: None)
  Receive Date: 20111013
  Receipt Date: 20111006
  Transmission Date: 20120403
  Serious: Yes (Death, Hospitalization, Other)
  Sender: FDA-Public Use
  Company Number: US-PFIZER INC-US-WYE-H17843510

PATIENT
  Sex: Female
  Weight: 67.1 kg

DRUGS (10)
  1. DONEPEZIL HYDROCHLORIDE [Concomitant]
     Indication: DEMENTIA ALZHEIMER'S TYPE
     Dosage: 10 MG, 1X/DAY
     Route: 048
     Dates: start: 20070610, end: 20101229
  2. ARICEPT [Concomitant]
     Indication: DEMENTIA ALZHEIMER'S TYPE
     Dosage: 10 MG, 1X/DAY
     Route: 048
     Dates: start: 20070610, end: 20101229
  3. ACC-001 AND QS-21 [Suspect]
     Indication: DEMENTIA ALZHEIMER'S TYPE
     Dosage: VANUTIDE CRIDIFICAR 3 UG AND QS-21 AT 50 UG
     Route: 030
     Dates: start: 20090916, end: 20101020
  4. ENSURE PLUS [Concomitant]
     Dosage: 4 CANS PER DAY
     Route: 048
     Dates: start: 20100901
  5. MEGESTROL [Concomitant]
     Dosage: 625 MG, 5 ML 1 IN 1 DAY
     Route: 048
     Dates: start: 20100830
  6. ACC-001 AND QS-21 [Suspect]
     Dosage: VANUTIDE CRIDIFICAR 3 UG AND QS-21 AT 50 UG
     Route: 030
     Dates: start: 20100317, end: 20100317
  7. ZOLOFT [Concomitant]
     Dosage: 50 MG, 1X/DAY
     Route: 048
     Dates: start: 20100901, end: 20101229
  8. ESOMEPRAZOLE [Concomitant]
     Dosage: 40 MG, 1X/DAY
     Route: 048
     Dates: start: 20100818
  9. ZOLOFT [Concomitant]
     Indication: DEPRESSION
     Dosage: 200 MG, 1X/DAY
     Route: 048
     Dates: start: 20020101, end: 20100901
  10. NAMENDA [Concomitant]
     Indication: DEMENTIA ALZHEIMER'S TYPE
     Dosage: 10 MG, 1X/DAY
     Route: 048
     Dates: start: 20070101, end: 20101229

REACTIONS (2)
  - DIARRHOEA [None]
  - GALLBLADDER CANCER METASTATIC [None]
